FAERS Safety Report 5530648-2 (Version None)
Quarter: 2007Q4

REPORT INFORMATION
  Report Type: 
  Country: None (occurrence: None)
  Receive Date: 20071130
  Receipt Date: 20071128
  Transmission Date: 20080405
  Serious: Yes (Other)
  Sender: FDA-Public Use
  Company Number: B0497368A

PATIENT
  Age: 50 Year
  Sex: Male
  Weight: 76 kg

DRUGS (4)
  1. BUPROPION HYDROCHLORIDE [Suspect]
     Indication: SMOKING CESSATION THERAPY
     Route: 048
     Dates: start: 20071015
  2. ALBUTEROL [Concomitant]
  3. BETAMETHASONE VALERATE [Concomitant]
  4. COMBIVENT [Concomitant]
     Route: 055

REACTIONS (3)
  - DEPRESSED MOOD [None]
  - DYSARTHRIA [None]
  - FEELING ABNORMAL [None]
